FAERS Safety Report 7457465-0 (Version None)
Quarter: 2011Q2

REPORT INFORMATION
  Report Type: 
  Country: None (occurrence: None)
  Receive Date: 20110503
  Receipt Date: 20110503
  Transmission Date: 20111010
  Serious: Yes (Other)
  Sender: FDA-Public Use
  Company Number: None

PATIENT
  Age: 54 Year
  Sex: Male
  Weight: 90.7194 kg

DRUGS (1)
  1. VICODIN ES [Suspect]
     Indication: BACK PAIN
     Dosage: VICODIN ES 9.5/700 (GENERIC) TID ORAL
     Route: 048
     Dates: start: 19990101, end: 19990801

REACTIONS (2)
  - PRODUCT SUBSTITUTION ISSUE [None]
  - DERMATITIS [None]
